FAERS Safety Report 16759107 (Version 1)
Quarter: 2019Q3

REPORT INFORMATION
  Report Type: Spontaneous
  Country: US (occurrence: US)
  Receive Date: 20190711
  Receipt Date: 20190711
  Transmission Date: 20191005
  Serious: Yes (Hospitalization)
  Sender: FDA-Public Use
  Company Number: None

PATIENT
  Age: 74 Year
  Sex: Female

DRUGS (7)
  1. BISOPROL FUM [Concomitant]
     Active Substance: BISOPROLOL FUMARATE
  2. HYDROCHLOROT [Concomitant]
     Active Substance: HYDROCHLOROTHIAZIDE
  3. ACYCLOVIR. [Concomitant]
     Active Substance: ACYCLOVIR
  4. COLESEVELAM [Concomitant]
     Active Substance: COLESEVELAM
  5. LASIX [Concomitant]
     Active Substance: FUROSEMIDE
  6. CYCLOPHOSPHAMIDE 50MG [Suspect]
     Active Substance: CYCLOPHOSPHAMIDE
     Indication: PLASMA CELL MYELOMA
     Dosage: ?          OTHER FREQUENCY:DAY 1, 8 + 15;?
     Route: 048
     Dates: start: 20180519
  7. POMALYST [Concomitant]
     Active Substance: POMALIDOMIDE

REACTIONS (2)
  - Gastric disorder [None]
  - Viral infection [None]

NARRATIVE: CASE EVENT DATE: 201906
